FAERS Safety Report 5515924-1 (Version None)
Quarter: 2007Q4

REPORT INFORMATION
  Report Type: 
  Country: None (occurrence: None)
  Receive Date: 20071114
  Receipt Date: 20071106
  Transmission Date: 20080405
  Serious: Yes (Hospitalization)
  Sender: FDA-Public Use
  Company Number: PHHO2007IT18634

PATIENT
  Age: 63 Year
  Sex: Female
  Weight: 49 kg

DRUGS (5)
  1. AMN107 [Suspect]
     Indication: CHRONIC MYELOID LEUKAEMIA
     Route: 048
     Dates: start: 20070809
  2. LANSOX [Concomitant]
  3. TAVOR [Concomitant]
  4. TRAMADOL [Concomitant]
  5. BENZODIAZEPINES [Concomitant]

REACTIONS (6)
  - ANXIETY [None]
  - CHEST PAIN [None]
  - PALPITATIONS [None]
  - SYNCOPE VASOVAGAL [None]
  - TACHYARRHYTHMIA [None]
  - VENIPUNCTURE [None]
